FAERS Safety Report 12645827 (Version 3)
Quarter: 2016Q3

REPORT INFORMATION
  Report Type: Report from Study
  Country: AR (occurrence: AR)
  Receive Date: 20160811
  Receipt Date: 20160825
  Transmission Date: 20161109
  Serious: Yes (Other)
  Sender: FDA-Public Use
  Company Number: PHHY2016AR109507

PATIENT
  Age: 68 Year
  Sex: Female

DRUGS (2)
  1. TIOTROPIUM [Concomitant]
     Active Substance: TIOTROPIUM
     Indication: PRODUCT USED FOR UNKNOWN INDICATION
     Route: 065
  2. ONBREZ BREEZHALER [Suspect]
     Active Substance: INDACATEROL
     Indication: CHRONIC OBSTRUCTIVE PULMONARY DISEASE
     Dosage: 1 DF, QD
     Route: 065

REACTIONS (7)
  - Thoracic vertebral fracture [Recovering/Resolving]
  - Musculoskeletal chest pain [Recovering/Resolving]
  - Pneumonia [Recovering/Resolving]
  - Cough [Recovering/Resolving]
  - Pleural effusion [Unknown]
  - Movement disorder [Unknown]
  - Mood altered [Recovering/Resolving]

NARRATIVE: CASE EVENT DATE: 20160728
